FAERS Safety Report 18273938 (Version 5)
Quarter: 2020Q4

REPORT INFORMATION
  Report Type: Report from Study
  Country: CA (occurrence: CA)
  Receive Date: 20200916
  Receipt Date: 20201208
  Transmission Date: 20210113
  Serious: Yes (Life-Threatening, Other)
  Sender: FDA-Public Use
  Company Number: CA-JNJFOC-20200913067

PATIENT
  Age: 35 Year
  Sex: Female
  Weight: 116.6 kg

DRUGS (4)
  1. REMICADE [Suspect]
     Active Substance: INFLIXIMAB
     Route: 042
     Dates: start: 20201017, end: 20201112
  2. PREDNISONE. [Concomitant]
     Active Substance: PREDNISONE
     Indication: PREMEDICATION
     Dosage: PRE-INFUSION, DAY OF INFUSION, AND 1 DAY POST INFUSION
     Route: 048
  3. REMICADE [Suspect]
     Active Substance: INFLIXIMAB
     Route: 042
     Dates: start: 20200904
  4. REMICADE [Suspect]
     Active Substance: INFLIXIMAB
     Indication: CROHN^S DISEASE
     Dosage: 9TH INFUSION OF DOSE 600 MG INFUSED ON 04-SEP-2020?V1: RECEIVED ON 19-SEP-2020 AT 250MLS/HR-EVENT-ST
     Route: 042
     Dates: start: 20190903

REACTIONS (10)
  - Therapeutic product effect decreased [Unknown]
  - Urticaria [Recovered/Resolved]
  - Pyrexia [Not Recovered/Not Resolved]
  - Abdominal pain [Not Recovered/Not Resolved]
  - Constipation [Unknown]
  - Arthralgia [Not Recovered/Not Resolved]
  - Drug level below therapeutic [Unknown]
  - Rash [Unknown]
  - Pruritus [Recovered/Resolved]
  - Infusion related reaction [Recovered/Resolved]

NARRATIVE: CASE EVENT DATE: 20200904
